FAERS Safety Report 4680989-6 (Version None)
Quarter: 2005Q2

REPORT INFORMATION
  Report Type: 
  Country: None (occurrence: None)
  Receive Date: 20050603
  Receipt Date: 20050527
  Transmission Date: 20051028
  Serious: Yes (Hospitalization)
  Sender: FDA-Public Use
  Company Number: PHBS2005BR07653

PATIENT
  Age: 4 Year
  Sex: Female
  Weight: 25 kg

DRUGS (1)
  1. TEGRETOL [Suspect]
     Indication: EPILEPSY
     Route: 065

REACTIONS (2)
  - MUSCLE RIGIDITY [None]
  - PARALYSIS [None]
